FAERS Safety Report 25340646 (Version 3)
Quarter: 2025Q2

REPORT INFORMATION
  Report Type: Spontaneous
  Country: IT (occurrence: IT)
  Receive Date: 20250521
  Receipt Date: 20250624
  Transmission Date: 20250716
  Serious: Yes (Hospitalization, Other)
  Sender: NOVARTIS
  Company Number: None

PATIENT
  Age: 58 Year
  Sex: Female
  Weight: 56 kg

DRUGS (2)
  1. KISQALI [Suspect]
     Active Substance: RIBOCICLIB SUCCINATE
     Indication: Product used for unknown indication
     Route: 065
     Dates: start: 20240704, end: 20240901
  2. ANASTROZOLE [Concomitant]
     Active Substance: ANASTROZOLE
     Indication: Product used for unknown indication
     Route: 065
     Dates: start: 20240704

REACTIONS (3)
  - Febrile neutropenia [Recovered/Resolved]
  - Hyponatraemia [Recovered/Resolved]
  - Confusional state [Recovered/Resolved]

NARRATIVE: CASE EVENT DATE: 20240901
